FAERS Safety Report 7889186-4 (Version None)
Quarter: 2011Q4

REPORT INFORMATION
  Report Type: 
  Country: None (occurrence: None)
  Receive Date: 20111101
  Receipt Date: 20111021
  Transmission Date: 20120403
  Serious: Yes (Hospitalization, Other)
  Sender: FDA-Public Use
  Company Number: 2011SP049984

PATIENT
  Sex: Male

DRUGS (4)
  1. OMEPRAZOLE [Concomitant]
  2. PEG-INTRON [Suspect]
     Indication: HEPATITIS C
     Dates: start: 20110814, end: 20111020
  3. VICTRELIS [Suspect]
     Indication: HEPATITIS C
     Dates: start: 20110919, end: 20110926
  4. RIBAVIRIN [Suspect]
     Indication: HEPATITIS C
     Dates: start: 20110814, end: 20111020

REACTIONS (10)
  - MUSCLE SPASMS [None]
  - PRODUCT TASTE ABNORMAL [None]
  - GASTROOESOPHAGEAL REFLUX DISEASE [None]
  - CONDITION AGGRAVATED [None]
  - INTESTINAL OBSTRUCTION [None]
  - ABDOMINAL PAIN UPPER [None]
  - ANAEMIA [None]
  - DYSPNOEA [None]
  - INJECTION SITE DISCOLOURATION [None]
  - ERUCTATION [None]
